FAERS Safety Report 12622874 (Version 1)
Quarter: 2016Q3

REPORT INFORMATION
  Report Type: Spontaneous
  Country: US (occurrence: US)
  Receive Date: 20160804
  Receipt Date: 20160804
  Transmission Date: 20161109
  Serious: Yes (Other)
  Sender: FDA-Public Use
  Company Number: US-PFIZER INC-2016368688

PATIENT
  Age: 81 Year
  Sex: Female
  Weight: 77.11 kg

DRUGS (5)
  1. VITAMIN D2 [Concomitant]
     Active Substance: ERGOCALCIFEROL
     Indication: ARTHRITIS
     Dosage: 500 IU, WEEKLY, 5,000 UNITS EACH WEEK ON FRIDAY
     Route: 048
  2. DOXYCYCLINE HYCLATE. [Suspect]
     Active Substance: DOXYCYCLINE HYCLATE
  3. DOXYCYCLINE HYCLATE. [Suspect]
     Active Substance: DOXYCYCLINE HYCLATE
     Indication: MYCOPLASMA INFECTION
     Dosage: 100 MG, 2X/DAY
     Route: 048
     Dates: end: 20160726
  4. VIBRAMYCIN [Suspect]
     Active Substance: DOXYCYCLINE
     Indication: MYCOPLASMA INFECTION
     Dosage: 100 MG, 2X/DAY
     Route: 048
  5. VITAMIN B COMPLEX [Concomitant]
     Active Substance: CYANOCOBALAMIN\DEXPANTHENOL\NIACINAMIDE\PYRIDOXINE HYDROCHLORIDE\RIBOFLAVIN 5^-PHOSPHATE SODIUM\THIAMINE HYDROCHLORIDE\VITAMIN B COMPLEX
     Indication: MUSCLE DISORDER
     Dosage: 1 DF, DAILY, ONE PER DAY
     Route: 048

REACTIONS (4)
  - Blindness [Not Recovered/Not Resolved]
  - Anaesthesia [Unknown]
  - Visual acuity reduced [Unknown]
  - Vision blurred [Unknown]
